FAERS Safety Report 25982493 (Version 3)
Quarter: 2025Q4

REPORT INFORMATION
  Report Type: Report from Study
  Country: US (occurrence: US)
  Receive Date: 20251031
  Receipt Date: 20251223
  Transmission Date: 20260118
  Serious: No
  Sender: ACADIA PHARMACEUTICALS
  Company Number: US-ACADIA PHARMACEUTICALS INC.-ACA-2025-PIM-011652

PATIENT
  Sex: Female

DRUGS (44)
  1. NUPLAZID [Suspect]
     Active Substance: PIMAVANSERIN TARTRATE
     Indication: Parkinson^s disease psychosis
     Dosage: 34 MILLIGRAM, QD
     Route: 048
     Dates: start: 20250909
  2. ALBUTEROL [Concomitant]
     Active Substance: ALBUTEROL
     Dosage: NEBULISER 1.25MG/3
  3. ARIPIPRAZOLE [Concomitant]
     Active Substance: ARIPIPRAZOLE
  4. ATORVASTATIN [Concomitant]
     Active Substance: ATORVASTATIN
  5. BENZONATATE [Concomitant]
     Active Substance: BENZONATATE
  6. BUPROPION HYDROCHLORIDE [Concomitant]
     Active Substance: BUPROPION HYDROCHLORIDE
     Dosage: UNK
  7. BUPROPION [Concomitant]
     Active Substance: BUPROPION
     Dosage: SR TABLET
  8. CARBIDOPA\LEVODOPA [Concomitant]
     Active Substance: CARBIDOPA\LEVODOPA
  9. DIAZEPAM [Concomitant]
     Active Substance: DIAZEPAM
  10. DIAZEPAM [Concomitant]
     Active Substance: DIAZEPAM
  11. DICLOFENAC [Concomitant]
     Active Substance: DICLOFENAC
  12. DICLOFENAC SODIUM [Concomitant]
     Active Substance: DICLOFENAC SODIUM
     Dosage: SODIUM
  13. DILTIAZEM [Concomitant]
     Active Substance: DILTIAZEM
     Dosage: ER
  14. DILTIAZEM [Concomitant]
     Active Substance: DILTIAZEM
     Dosage: ER
  15. DOXYCYCLINE HYDROCHLORIDE [Concomitant]
     Active Substance: DOXYCYCLINE HYDROCHLORIDE
  16. ELIQUIS [Concomitant]
     Active Substance: APIXABAN
  17. FLUOXETINE [Concomitant]
     Active Substance: FLUOXETINE HYDROCHLORIDE
  18. FLUOXETINE HYDROCHLORIDE [Concomitant]
     Active Substance: FLUOXETINE HYDROCHLORIDE
     Dosage: UNK
  19. FUROSEMIDE [Concomitant]
     Active Substance: FUROSEMIDE
  20. FUROSEMIDE [Concomitant]
     Active Substance: FUROSEMIDE
  21. GABAPENTIN [Concomitant]
     Active Substance: GABAPENTIN
  22. HYDROXYZINE HYDROCHLORIDE [Concomitant]
     Active Substance: HYDROXYZINE HYDROCHLORIDE
     Dosage: HCL
  23. JARDIANCE [Concomitant]
     Active Substance: EMPAGLIFLOZIN
  24. LAMOTRIGINE [Concomitant]
     Active Substance: LAMOTRIGINE
  25. LANTUS [Concomitant]
     Active Substance: INSULIN GLARGINE
     Dosage: 100/ML
  26. LEVOTHYROXINE SODIUM [Concomitant]
     Active Substance: LEVOTHYROXINE SODIUM
     Dosage: UNK
  27. LIDOCAINE [Concomitant]
     Active Substance: LIDOCAINE
  28. LISINOPRIL [Concomitant]
     Active Substance: LISINOPRIL
  29. METFORMIN [Concomitant]
     Active Substance: METFORMIN HYDROCHLORIDE
  30. MORPHINE SULFATE [Concomitant]
     Active Substance: MORPHINE SULFATE
  31. MORPHINE SULFATE [Concomitant]
     Active Substance: MORPHINE SULFATE
  32. ALEVE [Concomitant]
     Active Substance: NAPROXEN SODIUM
  33. MOUNJARO [Concomitant]
     Active Substance: TIRZEPATIDE
     Dosage: 2.5/0.5
  34. NALOXONE HCL [Concomitant]
     Active Substance: NALOXONE HYDROCHLORIDE
  35. NITROFURANTOIN [Concomitant]
     Active Substance: NITROFURANTOIN
  36. OXYCODONE [Concomitant]
     Active Substance: OXYCODONE
     Dosage: 10 MG
  37. OXYCODONE [Concomitant]
     Active Substance: OXYCODONE
     Dosage: 15 MG
  38. PILOCARPINE HYDROCHLORIDE [Concomitant]
     Active Substance: PILOCARPINE HYDROCHLORIDE
  39. PRAZOSIN HYDROCHLORIDE [Concomitant]
     Active Substance: PRAZOSIN HYDROCHLORIDE
  40. PREDNISONE [Concomitant]
     Active Substance: PREDNISONE
  41. SYMBICORT [Concomitant]
     Active Substance: BUDESONIDE\FORMOTEROL FUMARATE DIHYDRATE
     Dosage: 160-4.5
  42. TIZANIDINE [Concomitant]
     Active Substance: TIZANIDINE
  43. UBRELVY [Concomitant]
     Active Substance: UBROGEPANT
  44. VENTOLIN HFA [Concomitant]
     Active Substance: ALBUTEROL SULFATE

REACTIONS (3)
  - Peripheral swelling [Unknown]
  - Product dose omission in error [Not Recovered/Not Resolved]
  - Product dose omission issue [Recovered/Resolved]
